FAERS Safety Report 4991459-X (Version None)
Quarter: 2006Q2

REPORT INFORMATION
  Report Type: 
  Country: None (occurrence: None)
  Receive Date: 20060502
  Receipt Date: 20060418
  Transmission Date: 20061013
  Serious: Yes (Hospitalization)
  Sender: FDA-Public Use
  Company Number: 2006P1000247

PATIENT
  Age: 81 Year
  Sex: Female

DRUGS (11)
  1. RETEPLASE                  (RETEPLASE) [Suspect]
     Indication: ACUTE MYOCARDIAL INFARCTION
     Dosage: IV
     Route: 042
     Dates: start: 20051214, end: 20051214
  2. REOPRO [Suspect]
     Indication: ACUTE MYOCARDIAL INFARCTION
     Dosage: IV
     Route: 042
     Dates: start: 20051214
  3. CLOPIDOGREL [Concomitant]
  4. ASPIRIN [Concomitant]
  5. METOPROLOL TARTRATE [Concomitant]
  6. RAMIPRIL [Concomitant]
  7. FLUVASTATIN [Concomitant]
  8. SPIRONOLACTONE [Concomitant]
  9. FAMOTIDINE [Concomitant]
  10. OMEPRAZOLE [Concomitant]
  11. CARVEDILOL [Concomitant]

REACTIONS (19)
  - ANOREXIA [None]
  - ARTHRALGIA [None]
  - ARTHRITIS [None]
  - ASTHENIA [None]
  - BRADYCARDIA [None]
  - DIZZINESS [None]
  - HEART RATE IRREGULAR [None]
  - JOINT EFFUSION [None]
  - JOINT RANGE OF MOTION DECREASED [None]
  - ORTHOSTATIC HYPOTENSION [None]
  - PRODUCTIVE COUGH [None]
  - SUPRAVENTRICULAR EXTRASYSTOLES [None]
  - SYNOVIAL CYST [None]
  - SYNOVITIS [None]
  - URINARY INCONTINENCE [None]
  - VENTRICULAR EXTRASYSTOLES [None]
  - VENTRICULAR FIBRILLATION [None]
  - VERTIGO [None]
  - WEIGHT DECREASED [None]
